APPROVED DRUG PRODUCT: XYREM
Active Ingredient: SODIUM OXYBATE
Strength: 0.5GM/ML
Dosage Form/Route: SOLUTION;ORAL
Application: N021196 | Product #001 | TE Code: AA
Applicant: JAZZ PHARMACEUTICALS INC
Approved: Jul 17, 2002 | RLD: Yes | RS: Yes | Type: RX

PATENTS:
Patent 10213400 | Expires: Mar 15, 2033
Patent 9486426 | Expires: Mar 15, 2033
Patent 9050302 | Expires: Mar 15, 2033
Patent 8772306 | Expires: Mar 15, 2033
Patent 11986446 | Expires: Mar 15, 2033
Patent 10864181 | Expires: Mar 15, 2033
Patent 11253494 | Expires: Mar 15, 2033
Patent 11253494 | Expires: Mar 15, 2033
Patent 8772306*PED | Expires: Sep 15, 2033
Patent 9486426*PED | Expires: Sep 15, 2033
Patent 9050302*PED | Expires: Sep 15, 2033
Patent 11253494*PED | Expires: Sep 15, 2033
Patent 10213400*PED | Expires: Sep 15, 2033
Patent 10864181*PED | Expires: Sep 15, 2033

EXCLUSIVITY:
Code: PED | Date: Apr 26, 2026
Code: ODE-231 | Date: Oct 26, 2025